FAERS Safety Report 4945257-3 (Version None)
Quarter: 2006Q1

REPORT INFORMATION
  Report Type: 
  Country: None (occurrence: None)
  Receive Date: 20060316
  Receipt Date: 20060307
  Transmission Date: 20060701
  Serious: Yes (Other)
  Sender: FDA-Public Use
  Company Number: US-BRISTOL-MYERS SQUIBB COMPANY-13306055

PATIENT
  Sex: Female

DRUGS (3)
  1. COUMADIN [Suspect]
  2. COUMADIN [Suspect]
  3. ASPIRIN [Concomitant]

REACTIONS (3)
  - CONVULSION [None]
  - WEIGHT DECREASED [None]
  - WEIGHT GAIN POOR [None]
